FAERS Safety Report 13829461 (Version 1)
Quarter: 2017Q3

REPORT INFORMATION
  Report Type: Spontaneous
  Country: US (occurrence: US)
  Receive Date: 20170803
  Receipt Date: 20170803
  Transmission Date: 20171127
  Serious: No
  Sender: FDA-Public Use
  Company Number: US-GLAXOSMITHKLINE-US2017119715

PATIENT
  Sex: Male

DRUGS (17)
  1. IPRATROPIUM BROMIDE. [Concomitant]
     Active Substance: IPRATROPIUM BROMIDE
  2. LEVALBUTEROL. [Concomitant]
     Active Substance: LEVALBUTEROL
  3. ARNUITY ELLIPTA [Suspect]
     Active Substance: FLUTICASONE FUROATE
     Indication: ASTHMA
     Route: 055
     Dates: start: 20170403, end: 20170731
  4. LEVOTHYROXINE. [Concomitant]
     Active Substance: LEVOTHYROXINE
  5. LOPRESSOR [Concomitant]
     Active Substance: METOPROLOL TARTRATE
  6. ZYRTEC [Concomitant]
     Active Substance: CETIRIZINE HYDROCHLORIDE
  7. ATORVASTATIN [Concomitant]
     Active Substance: ATORVASTATIN
  8. FLOVENT DISKUS [Concomitant]
     Active Substance: FLUTICASONE PROPIONATE
  9. FLUOXETINE [Concomitant]
     Active Substance: FLUOXETINE HYDROCHLORIDE
  10. PLAVIX [Concomitant]
     Active Substance: CLOPIDOGREL BISULFATE
  11. RESTORIL [Concomitant]
     Active Substance: TEMAZEPAM
  12. BIPAP [Concomitant]
     Active Substance: DEVICE
  13. PROTONIX [Concomitant]
     Active Substance: PANTOPRAZOLE SODIUM
  14. ROPINIROLE. [Concomitant]
     Active Substance: ROPINIROLE
  15. XOPENEX HFA [Concomitant]
     Active Substance: LEVALBUTEROL TARTRATE
  16. ASPIRIN. [Concomitant]
     Active Substance: ASPIRIN
  17. MULTAQ [Concomitant]
     Active Substance: DRONEDARONE

REACTIONS (2)
  - Balance disorder [Unknown]
  - Dizziness [Unknown]
